FAERS Safety Report 13033930 (Version 1)
Quarter: 2016Q4

REPORT INFORMATION
  Report Type: Other
  Country: CA (occurrence: CA)
  Receive Date: 20161216
  Receipt Date: 20161216
  Transmission Date: 20170207
  Serious: Yes (Other)
  Sender: FDA-Public Use
  Company Number: CA-APOTEX-2016AP015505

PATIENT
  Age: 37 Year
  Sex: Male

DRUGS (4)
  1. APO-CLONAZEPAM [Suspect]
     Active Substance: CLONAZEPAM
     Indication: ANXIETY
     Dosage: 10 MG, QD
     Route: 048
  2. DILANTIN [Concomitant]
     Active Substance: PHENYTOIN
     Indication: PRODUCT USED FOR UNKNOWN INDICATION
     Dosage: UNK
     Route: 065
  3. APO-CLONAZEPAM [Suspect]
     Active Substance: CLONAZEPAM
     Dosage: 10 MG, BID
     Route: 048
  4. APO-CLONAZEPAM [Suspect]
     Active Substance: CLONAZEPAM
     Indication: EPILEPSY
     Dosage: 10 MG, BID
     Route: 048

REACTIONS (7)
  - Seizure [Unknown]
  - Heart rate increased [Unknown]
  - Head injury [Unknown]
  - Fall [Unknown]
  - Product quality issue [Unknown]
  - Anxiety [Unknown]
  - Drug ineffective [Unknown]
